FAERS Safety Report 8126489-2 (Version None)
Quarter: 2012Q1

REPORT INFORMATION
  Report Type: 
  Country: None (occurrence: None)
  Receive Date: 20120209
  Receipt Date: 20120131
  Transmission Date: 20120608
  Serious: Yes (Hospitalization, Other)
  Sender: FDA-Public Use
  Company Number: US-ASTRAZENECA-2010SE56655

PATIENT
  Age: 74 Year
  Sex: Female

DRUGS (9)
  1. PEPCID [Concomitant]
  2. ZESTRIL [Suspect]
     Route: 048
  3. ZANTAC [Concomitant]
  4. STERLAZINE [Concomitant]
  5. NEXIUM [Suspect]
     Dosage: DAILY
     Route: 048
     Dates: end: 20100101
  6. TOPROL-XL [Suspect]
     Route: 048
  7. VERAPAMIL [Concomitant]
  8. NEXIUM [Suspect]
     Route: 048
     Dates: end: 20100101
  9. LOTREL [Concomitant]

REACTIONS (9)
  - DRUG INEFFECTIVE [None]
  - MALAISE [None]
  - RECTAL HAEMORRHAGE [None]
  - HAEMATOCHEZIA [None]
  - ILL-DEFINED DISORDER [None]
  - NAUSEA [None]
  - DRUG DOSE OMISSION [None]
  - BLOOD PRESSURE ABNORMAL [None]
  - HYPERTENSION [None]
